FAERS Safety Report 24427364 (Version 4)
Quarter: 2025Q3

REPORT INFORMATION
  Report Type: Spontaneous
  Country: US (occurrence: US)
  Receive Date: 20241011
  Receipt Date: 20250704
  Transmission Date: 20251021
  Serious: Yes (Other)
  Sender: SANOFI AVENTIS
  Company Number: US-SA-2024SA291653

PATIENT
  Age: 59 Year
  Sex: Female
  Weight: 79.09 kg

DRUGS (4)
  1. DUPIXENT [Suspect]
     Active Substance: DUPILUMAB
     Indication: Dermatitis atopic
     Dosage: 300 MG, QOW
     Route: 058
  2. CALCIUM CARBONATE [Concomitant]
     Active Substance: CALCIUM CARBONATE
  3. METHOTREXATE [Concomitant]
     Active Substance: METHOTREXATE
  4. EFFEXOR [Concomitant]
     Active Substance: VENLAFAXINE HYDROCHLORIDE

REACTIONS (5)
  - Spinal operation [Unknown]
  - Dry skin [Unknown]
  - Pruritus [Unknown]
  - Pruritus [Unknown]
  - Rebound effect [Unknown]

NARRATIVE: CASE EVENT DATE: 20240901
